FAERS Safety Report 10846971 (Version 2)
Quarter: 2015Q2

REPORT INFORMATION
  Report Type: Spontaneous
  Country: US (occurrence: US)
  Receive Date: 20150220
  Receipt Date: 20150414
  Transmission Date: 20150821
  Serious: Yes (Hospitalization, Disabling, Other)
  Sender: FDA-Public Use
  Company Number: US-ELI_LILLY_AND_COMPANY-US201502004093

PATIENT
  Age: 60 Year
  Sex: Male

DRUGS (5)
  1. LANTUS [Concomitant]
     Active Substance: INSULIN GLARGINE
  2. ALKA SELTZER PLUS                  /00002701/ [Concomitant]
     Dosage: UNK, PRN
  3. FLONASE                            /00908302/ [Concomitant]
     Indication: SINUS DISORDER
     Dosage: UNK
  4. HUMALOG [Suspect]
     Active Substance: INSULIN LISPRO
     Indication: TYPE 1 DIABETES MELLITUS
     Dosage: 10 U, PRN
     Route: 065
  5. HYDROCODONE [Concomitant]
     Active Substance: HYDROCODONE
     Dosage: 1 DF, EACH EVENING
     Dates: start: 2012

REACTIONS (22)
  - Blindness [Unknown]
  - Tibia fracture [Unknown]
  - Red blood cell count decreased [Unknown]
  - Tinnitus [Unknown]
  - Product tampering [Unknown]
  - Incorrect dose administered [Unknown]
  - Headache [Unknown]
  - Fall [Recovered/Resolved]
  - Limb deformity [Not Recovered/Not Resolved]
  - Eye haemorrhage [Unknown]
  - Blood glucose increased [Recovered/Resolved]
  - Mobility decreased [Recovered/Resolved]
  - Diabetes mellitus inadequate control [Unknown]
  - Hypoglycaemic seizure [Unknown]
  - Staphylococcal infection [Unknown]
  - Pain [Unknown]
  - Diabetic retinopathy [Unknown]
  - Expired product administered [Recovered/Resolved]
  - Hypoglycaemic unconsciousness [Unknown]
  - Cataract [Unknown]
  - Blister [Unknown]
  - Malaise [Recovered/Resolved]

NARRATIVE: CASE EVENT DATE: 2012
